FAERS Safety Report 4467993-8 (Version None)
Quarter: 2004Q4

REPORT INFORMATION
  Report Type: 
  Country: None (occurrence: None)
  Receive Date: 20041004
  Receipt Date: 20041004
  Transmission Date: 20050328
  Serious: Yes (Other)
  Sender: FDA-Public Use
  Company Number: None

PATIENT
  Sex: Female
  Weight: 81.6475 kg

DRUGS (2)
  1. VIOXX [Suspect]
     Indication: FIBROMYALGIA
     Dosage: 1 PILL  1-2 TIMES  ORAL
     Route: 048
  2. VIOXX [Suspect]
     Indication: SARCOIDOSIS
     Dosage: 1 PILL  1-2 TIMES  ORAL
     Route: 048

REACTIONS (1)
  - HYPERTENSION [None]
